FAERS Safety Report 21838413 (Version 1)
Quarter: 2023Q1

REPORT INFORMATION
  Report Type: Spontaneous
  Country: US (occurrence: None)
  Receive Date: 20230106
  Receipt Date: 20230106
  Transmission Date: 20230418
  Serious: Yes (Life-Threatening)
  Sender: FDA-Public Use
  Company Number: None

PATIENT
  Age: 77 Year
  Sex: Male
  Weight: 69.8 kg

DRUGS (4)
  1. PEMBROLIZUMAB [Suspect]
     Active Substance: PEMBROLIZUMAB
     Dosage: OTHER FREQUENCY : EVERY 3 WEEKS;?
     Route: 042
     Dates: start: 20221114, end: 20221228
  2. MESTINON [Suspect]
     Active Substance: PYRIDOSTIGMINE BROMIDE
  3. ALIMTA [Suspect]
     Active Substance: PEMETREXED DISODIUM
  4. CARBOPLATIN [Suspect]
     Active Substance: CARBOPLATIN

REACTIONS (10)
  - Eye swelling [None]
  - Muscular weakness [None]
  - Aspartate aminotransferase increased [None]
  - Alanine aminotransferase increased [None]
  - Rash [None]
  - Diarrhoea [None]
  - Abdominal pain [None]
  - Arthropathy [None]
  - Atrial fibrillation [None]
  - Aspiration [None]

NARRATIVE: CASE EVENT DATE: 20221225
